FAERS Safety Report 9191440 (Version 1)
Quarter: 2013Q1

REPORT INFORMATION
  Report Type: Spontaneous
  Country: BR (occurrence: BR)
  Receive Date: 20130326
  Receipt Date: 20130326
  Transmission Date: 20140127
  Serious: Yes (Other)
  Sender: FDA-Public Use
  Company Number: CHPA2012BR020245

PATIENT
  Sex: Female
  Weight: 110 kg

DRUGS (3)
  1. CIBALENAA [Suspect]
     Indication: HEADACHE
     Dosage: 2 DF, QD
  2. CIBALENAA [Suspect]
     Dosage: 1 DF, PRN
     Route: 048
  3. LASIX [Concomitant]
     Indication: DIURETIC THERAPY
     Dosage: 1 DF, QD
     Route: 048
     Dates: start: 1994

REACTIONS (4)
  - Asthma [Recovered/Resolved]
  - Hypertension [Recovered/Resolved]
  - Dysphagia [Not Recovered/Not Resolved]
  - Disease recurrence [Not Recovered/Not Resolved]
